FAERS Safety Report 8558630-1 (Version None)
Quarter: 2012Q3

REPORT INFORMATION
  Report Type: 
  Country: None (occurrence: None)
  Receive Date: 20120801
  Receipt Date: 20120112
  Transmission Date: 20120928
  Serious: Yes (Other)
  Sender: FDA-Public Use
  Company Number: US-ROCHE-1094642

PATIENT
  Sex: Female

DRUGS (2)
  1. XOLAIR [Suspect]
     Indication: ASTHMA
     Dates: start: 20060101, end: 20070101
  2. XOLAIR [Suspect]
     Dosage: LAST DOSE: 15 JUN 2012
     Dates: start: 20120101

REACTIONS (2)
  - ASTHMA [None]
  - HEADACHE [None]
